FAERS Safety Report 5084862-3 (Version None)
Quarter: 2006Q3

REPORT INFORMATION
  Report Type: 
  Country: None (occurrence: None)
  Receive Date: 20060815
  Receipt Date: 20060801
  Transmission Date: 20061208
  Serious: Yes (Hospitalization)
  Sender: FDA-Public Use
  Company Number: US017700

PATIENT
  Age: 30 Year
  Sex: Male

DRUGS (5)
  1. TRISENOX [Suspect]
     Indication: ACUTE PROMYELOCYTIC LEUKAEMIA
     Dosage: 8.43 MG QD INTRAVENOUS DRIP
     Route: 041
     Dates: start: 20060320, end: 20060413
  2. IMIPENEM CILASTATIN [Concomitant]
  3. BIFIDOBACTERIUM [Concomitant]
  4. LOPERAMIDE HYDROCHLORIDE [Concomitant]
  5. CEFEPIME DIHYDROCHLORIDE [Concomitant]

REACTIONS (6)
  - ALANINE AMINOTRANSFERASE INCREASED [None]
  - ASPARTATE AMINOTRANSFERASE INCREASED [None]
  - C-REACTIVE PROTEIN INCREASED [None]
  - ELECTROCARDIOGRAM QT PROLONGED [None]
  - FEBRILE NEUTROPENIA [None]
  - WHITE BLOOD CELL COUNT DECREASED [None]
